FAERS Safety Report 7457552-7 (Version None)
Quarter: 2011Q2

REPORT INFORMATION
  Report Type: 
  Country: None (occurrence: None)
  Receive Date: 20110504
  Receipt Date: 20101117
  Transmission Date: 20111010
  Serious: Yes (Other)
  Sender: FDA-Public Use
  Company Number: US-SANOFI-AVENTIS-2010SA070674

PATIENT
  Sex: Female

DRUGS (1)
  1. APIDRA [Suspect]
     Indication: DIABETES MELLITUS
     Dosage: VIA PUMP
     Route: 058
     Dates: start: 19580101

REACTIONS (1)
  - HYPOGLYCAEMIC UNCONSCIOUSNESS [None]
